FAERS Safety Report 8842573 (Version 2)
Quarter: 2012Q4

REPORT INFORMATION
  Report Type: 
  Country: US (occurrence: US)
  Receive Date: 20121016
  Receipt Date: 20121102
  Transmission Date: 20130627
  Serious: Yes (Hospitalization)
  Sender: FDA-Public Use
  Company Number: US-VIROPHARMA INCORPORATED-20121008CINRY3472

PATIENT
  Sex: Female

DRUGS (10)
  1. CINRYZE (C1 ESTERASE INHIBITOR (HUMAN)) [Suspect]
     Indication: HEREDITARY ANGIOEDEMA
     Dates: start: 200810
  2. BERINERT [Concomitant]
     Indication: HEREDITARY ANGIOEDEMA
  3. DILAUDID [Concomitant]
     Indication: PAIN
     Route: 065
  4. WARFARIN [Concomitant]
     Indication: ANTICOAGULANT THERAPY
     Route: 048
  5. ZOLOFT [Concomitant]
     Indication: PRODUCT USED FOR UNKNOWN INDICATION
     Route: 048
  6. SYNTHROID [Concomitant]
     Indication: HYPOTHYROIDISM
     Route: 065
  7. NEXIUM [Concomitant]
     Indication: GASTROOESOPHAGEAL REFLUX DISEASE
     Route: 048
  8. ATIVAN [Concomitant]
     Indication: PRODUCT USED FOR UNKNOWN INDICATION
     Route: 065
  9. BENADRYL [Concomitant]
     Indication: HYPERSENSITIVITY
     Route: 048
  10. ZOFRAN [Concomitant]
     Indication: NAUSEA
     Route: 065

REACTIONS (2)
  - Non-Hodgkin^s lymphoma recurrent [Unknown]
  - Therapy regimen changed [Not Recovered/Not Resolved]
